FAERS Safety Report 8852088 (Version 1)
Quarter: 2012Q4

REPORT INFORMATION
  Report Type: Spontaneous
  Country: US (occurrence: None)
  Receive Date: 20121022
  Receipt Date: 20121022
  Transmission Date: 20130627
  Serious: No
  Sender: FDA-Public Use
  Company Number: None

PATIENT
  Age: 40 Year
  Sex: Male

DRUGS (1)
  1. BETAMETHASONE SODIUM PHOSPHATE [Suspect]
     Indication: LUMBAR DISC HERNIATION
     Dosage: 2 ml 1 time only Epidural
     Route: 008
     Dates: start: 20120829, end: 20120829

REACTIONS (1)
  - Headache [None]
